FAERS Safety Report 23143599 (Version 4)
Quarter: 2023Q4

REPORT INFORMATION
  Report Type: Report from Study
  Country: US (occurrence: US)
  Receive Date: 20231103
  Receipt Date: 20231218
  Transmission Date: 20240110
  Serious: Yes (Hospitalization, Other)
  Sender: FDA-Public Use
  Company Number: US-GILEAD-2023-0649721

PATIENT
  Sex: Female

DRUGS (6)
  1. AMBRISENTAN [Suspect]
     Active Substance: AMBRISENTAN
     Indication: Pulmonary hypertension
     Dosage: 5 MG, QD
     Route: 065
     Dates: start: 20230703
  2. REMODULIN [Suspect]
     Active Substance: TREPROSTINIL
     Indication: Product used for unknown indication
     Dosage: UNK
     Route: 065
     Dates: start: 20231112
  3. SILDENAFIL [Concomitant]
     Active Substance: SILDENAFIL
  4. SILDENAFIL CITRATE [Concomitant]
     Active Substance: SILDENAFIL CITRATE
  5. BOSENTAN [Concomitant]
     Active Substance: BOSENTAN
  6. TADLIQ [Concomitant]
     Active Substance: TADALAFIL

REACTIONS (5)
  - Tracheostomy [Recovering/Resolving]
  - Pulmonary hypertension [Unknown]
  - Oxygen saturation decreased [Unknown]
  - Respiration abnormal [Unknown]
  - Off label use [Not Recovered/Not Resolved]
